FAERS Safety Report 15383988 (Version 1)
Quarter: 2018Q4

REPORT INFORMATION
  Report Type: Spontaneous
  Country: FR (occurrence: FR)
  Receive Date: 20180914
  Receipt Date: 20180914
  Transmission Date: 20190204
  Serious: Yes (Death)
  Sender: FDA-Public Use
  Company Number: FR-SUN PHARMACEUTICAL INDUSTRIES LTD-2018RR-162430

PATIENT
  Age: 1 Month
  Sex: Female

DRUGS (16)
  1. KLIPAL CODEINE 600 MG/50 MG, COMPRIME [Suspect]
     Active Substance: ACETAMINOPHEN\CODEINE PHOSPHATE
     Indication: SPINAL PAIN
     Dosage: UNK
     Route: 064
     Dates: start: 20140203, end: 20150104
  2. UVESTEROL D 5000 UI/ML, SOLUTION BUVABLE [Suspect]
     Active Substance: ERGOCALCIFEROL
     Indication: PROPHYLAXIS
     Dosage: UNK
     Route: 048
  3. KETOPROFEN. [Suspect]
     Active Substance: KETOPROFEN
     Indication: SPINAL PAIN
     Dosage: UNK
     Route: 064
     Dates: start: 201401, end: 201404
  4. BROMAZEPAM ARROW 6 MG, COMPRIME QUADRISECABLE [Suspect]
     Active Substance: BROMAZEPAM
     Indication: ANXIETY
     Dosage: UNK
     Route: 064
  5. ACETYLCYSTEINE BIOGARAN [Suspect]
     Active Substance: ACETYLCYSTEINE
     Indication: BRONCHITIS
     Dosage: UNK
     Route: 064
     Dates: start: 20140825
  6. CARBOCISTEINE BIOGARAN [Suspect]
     Active Substance: CARBOCYSTEINE
     Indication: BRONCHITIS
     Dosage: UNK
     Route: 064
     Dates: start: 20141212, end: 20141216
  7. VOGALENE [Suspect]
     Active Substance: METOPIMAZINE
     Indication: NAUSEA
     Dosage: UNK
     Route: 064
     Dates: start: 201406, end: 201409
  8. IMODIUM [Suspect]
     Active Substance: LOPERAMIDE HYDROCHLORIDE
     Indication: DIARRHOEA
     Dosage: SI BESOIN
     Route: 064
     Dates: start: 20141212
  9. SPASFON LYOC 160 MG, LYOPHILISAT ORAL [Suspect]
     Active Substance: PHLOROGLUCINOL
     Indication: DYSPEPSIA
     Dosage: UNK
     Route: 064
     Dates: start: 201406, end: 201407
  10. NECYRANE, SOLUTION POUR PULVERISATION NASALE [Suspect]
     Active Substance: RITIOMETAN MAGNESIUM
     Indication: NASOPHARYNGITIS
     Dosage: UNK
     Route: 064
     Dates: start: 20140825
  11. SERETIDE [Suspect]
     Active Substance: FLUTICASONE PROPIONATE\SALMETEROL XINAFOATE
     Indication: ASTHMA
     Dosage: UNK
     Route: 064
     Dates: start: 20140825
  12. ANAFRANIL [Suspect]
     Active Substance: CLOMIPRAMINE HYDROCHLORIDE
     Indication: DEPRESSION
     Dosage: UNK
     Route: 064
  13. PIVALONE 1 POUR CENT, SUSPENSION NASALE [Suspect]
     Active Substance: TIXOCORTOL PIVALATE
     Indication: RHINITIS
     Dosage: UNK
     Route: 064
     Dates: start: 20141212
  14. OMEPRAZOLE. [Suspect]
     Active Substance: OMEPRAZOLE
     Indication: GASTROOESOPHAGEAL REFLUX DISEASE
     Dosage: UNK
     Route: 064
     Dates: start: 20140920
  15. AMOXICILLINE ALMUS 1 G, COMPRIME PELLICULE DISPERSIBLE [Suspect]
     Active Substance: AMOXICILLIN
     Indication: ASTHMA
     Dosage: UNK
     Route: 064
     Dates: start: 20140827
  16. MACROGOL BIOGARAN 10 G, POUDRE POUR SOLUTION BUVABLE EN SACHET-DOSE [Suspect]
     Active Substance: POLYETHYLENE GLYCOL 4000
     Indication: CONSTIPATION
     Dosage: UNK
     Route: 064
     Dates: start: 201406

REACTIONS (5)
  - Foetal exposure during pregnancy [Fatal]
  - Fungal infection [Fatal]
  - Death [Fatal]
  - Premature baby [Fatal]
  - Foetal arrhythmia [Fatal]

NARRATIVE: CASE EVENT DATE: 20150105
